FAERS Safety Report 7082539-6 (Version None)
Quarter: 2010Q3

REPORT INFORMATION
  Report Type: 
  Country: None (occurrence: None)
  Receive Date: 20100929
  Receipt Date: 20100806
  Transmission Date: 20110219
  Serious: No
  Sender: FDA-Public Use
  Company Number: US-WYE-H16798710

PATIENT
  Age: 54 Year
  Sex: Male
  Weight: 95.34 kg

DRUGS (6)
  1. PRISTIQ [Suspect]
     Indication: DEPRESSION
     Dosage: 50 MG 1X PER 1 DAY; 50 MG TABLET IN HALF PER PHYSICIAN
     Dates: start: 20100101, end: 20100101
  2. PRISTIQ [Suspect]
     Indication: DEPRESSION
     Dosage: 50 MG 1X PER 1 DAY; 50 MG TABLET IN HALF PER PHYSICIAN
     Dates: start: 20100101, end: 20100701
  3. GEODON [Suspect]
     Indication: SCHIZOPHRENIA
     Dosage: 160 MG 1X PER 1 DAY, ORAL; 80 MG 1X PER 1 DAY
     Route: 048
     Dates: start: 20100701, end: 20100101
  4. GEODON [Suspect]
     Indication: SCHIZOPHRENIA
     Dosage: 160 MG 1X PER 1 DAY, ORAL; 80 MG 1X PER 1 DAY
     Route: 048
     Dates: start: 20100101
  5. ULTRAM [Concomitant]
  6. DIOVAN HCT [Concomitant]

REACTIONS (3)
  - BLOOD URINE PRESENT [None]
  - CHOKING [None]
  - SEROTONIN SYNDROME [None]
